FAERS Safety Report 19278245 (Version 1)
Quarter: 2021Q2

REPORT INFORMATION
  Report Type: Spontaneous
  Country: US (occurrence: US)
  Receive Date: 20210519
  Receipt Date: 20210519
  Transmission Date: 20210717
  Serious: Yes (Other)
  Sender: FDA-Public Use
  Company Number: None

PATIENT
  Age: 71 Year
  Sex: Female
  Weight: 87.75 kg

DRUGS (19)
  1. DULOXETINE. [Concomitant]
     Active Substance: DULOXETINE
  2. LOSARTAN. [Concomitant]
     Active Substance: LOSARTAN
  3. SITAGLIPTIN [Concomitant]
     Active Substance: SITAGLIPTIN
  4. DOXYCYCLINE HYC 100MG TABS [Suspect]
     Active Substance: DOXYCYCLINE HYCLATE
     Indication: ALOPECIA
     Dosage: ?          QUANTITY:1 TABLET(S);?
     Route: 048
     Dates: start: 20210310, end: 20210427
  5. VITAMIN D3 [Concomitant]
     Active Substance: CHOLECALCIFEROL
  6. ATORVASTATIN [Concomitant]
     Active Substance: ATORVASTATIN
  7. HYDROCHLOROTHIAZIDE. [Concomitant]
     Active Substance: HYDROCHLOROTHIAZIDE
  8. PROBIOTIC [Concomitant]
     Active Substance: PROBIOTICS NOS
  9. FERROUS SULFATE. [Concomitant]
     Active Substance: FERROUS SULFATE
  10. CHLORHEXIDINE [Concomitant]
     Active Substance: CHLORHEXIDINE
  11. MULTIVITAMIN [Concomitant]
     Active Substance: VITAMINS
  12. MAGNESIUM [Concomitant]
     Active Substance: MAGNESIUM
  13. METFORMIN [Concomitant]
     Active Substance: METFORMIN HYDROCHLORIDE
  14. VITAMIN E [Concomitant]
     Active Substance: .ALPHA.-TOCOPHEROL
  15. PANTOPRAZOLE [Concomitant]
     Active Substance: PANTOPRAZOLE
  16. JARDIANCE [Concomitant]
     Active Substance: EMPAGLIFLOZIN
  17. FLUTICASONE PROPIONATE NASAL SPRAY [Concomitant]
     Active Substance: FLUTICASONE PROPIONATE
  18. IMMUNOGUARD [Concomitant]
  19. METOPROLOL SUCCINATE. [Concomitant]
     Active Substance: METOPROLOL SUCCINATE

REACTIONS (3)
  - Myalgia [None]
  - Drug intolerance [None]
  - Loss of personal independence in daily activities [None]

NARRATIVE: CASE EVENT DATE: 20210310
